FAERS Safety Report 16734150 (Version 3)
Quarter: 2020Q2

REPORT INFORMATION
  Report Type: Spontaneous
  Country: FR (occurrence: FR)
  Receive Date: 20190823
  Receipt Date: 20200615
  Transmission Date: 20200713
  Serious: Yes (Life-Threatening, Hospitalization, Other)
  Sender: FDA-Public Use
  Company Number: FR-ACCORD-152306

PATIENT
  Age: 51 Year
  Sex: Male
  Weight: 64 kg

DRUGS (3)
  1. AMLODIPINE [Suspect]
     Active Substance: AMLODIPINE BESYLATE
     Dosage: 10 MG/DAY, INGESTED (45 TABLETS)
     Route: 048
     Dates: start: 20190105, end: 20190105
  2. RAMIPRIL. [Suspect]
     Active Substance: RAMIPRIL
     Dosage: 10 MG/DAY, INGESTED (15 TABLETS)
     Route: 048
     Dates: start: 20190105, end: 20190105
  3. BISOPROLOL [Suspect]
     Active Substance: BISOPROLOL
     Dosage: 2 TABLETS OF 10MG DAILY, INGESTED (16 TABLETS)
     Route: 048
     Dates: start: 20190105, end: 20190105

REACTIONS (8)
  - Vasoplegia syndrome [Recovered/Resolved]
  - Hypotension [Recovered/Resolved]
  - Drug level increased [Recovering/Resolving]
  - Bundle branch block [Recovered/Resolved]
  - Poisoning deliberate [Unknown]
  - Acute kidney injury [Recovering/Resolving]
  - Bradycardia [Recovered/Resolved]
  - Pneumonitis [Recovered/Resolved]

NARRATIVE: CASE EVENT DATE: 20190105
